FAERS Safety Report 23925543 (Version 1)
Quarter: 2024Q2

REPORT INFORMATION
  Report Type: Spontaneous
  Country: US (occurrence: None)
  Receive Date: 20240531
  Receipt Date: 20240531
  Transmission Date: 20240716
  Serious: Yes (Hospitalization)
  Sender: FDA-Public Use
  Company Number: None

PATIENT
  Age: 81 Year
  Sex: Female
  Weight: 80.2 kg

DRUGS (2)
  1. FLUOROURACIL [Suspect]
     Active Substance: FLUOROURACIL
  2. MITOMYCIN C [Concomitant]
     Active Substance: MITOMYCIN

REACTIONS (3)
  - Neutropenia [None]
  - Thrombocytopenia [None]
  - Therapy change [None]

NARRATIVE: CASE EVENT DATE: 20240326
